FAERS Safety Report 20831045 (Version 2)
Quarter: 2022Q3

REPORT INFORMATION
  Report Type: Spontaneous
  Country: US (occurrence: US)
  Receive Date: 20220515
  Receipt Date: 20220718
  Transmission Date: 20221026
  Serious: No
  Sender: FDA-Public Use
  Company Number: US-BRISTOL-MYERS SQUIBB COMPANY-2022-028239

PATIENT
  Age: 64 Year
  Sex: Female

DRUGS (2)
  1. POMALYST [Suspect]
     Active Substance: POMALIDOMIDE
     Indication: Plasma cell myeloma
     Dosage: FREQUENCY : OTHER
     Route: 048
     Dates: start: 20220319, end: 20220512
  2. POMALYST [Suspect]
     Active Substance: POMALIDOMIDE
     Route: 065

REACTIONS (4)
  - Blood pressure increased [Unknown]
  - Tremor [Unknown]
  - Dizziness [Unknown]
  - Tremor [Recovered/Resolved]

NARRATIVE: CASE EVENT DATE: 20220502
